FAERS Safety Report 13505269 (Version 2)
Quarter: 2017Q2

REPORT INFORMATION
  Report Type: Spontaneous
  Country: US (occurrence: US)
  Receive Date: 20170502
  Receipt Date: 20170509
  Transmission Date: 20170830
  Serious: Yes (Hospitalization, Other)
  Sender: FDA-Public Use
  Company Number: US-GEHC-2017CSU001062

PATIENT
  Age: 37 Year
  Sex: Female
  Weight: 73.47 kg

DRUGS (1)
  1. OMNIPAQUE [Suspect]
     Active Substance: IOHEXOL
     Indication: PAIN
     Dosage: UNK, SINGLE
     Route: 042
     Dates: start: 20170402, end: 20170402

REACTIONS (11)
  - Paraesthesia [Recovered/Resolved]
  - Sensory loss [Unknown]
  - Migraine [Not Recovered/Not Resolved]
  - Anaphylactic reaction [Recovered/Resolved]
  - Ear pain [Unknown]
  - Vascular pain [Unknown]
  - Nausea [Unknown]
  - Poor peripheral circulation [Unknown]
  - Abdominal pain [Unknown]
  - Burning sensation [Recovered/Resolved]
  - Cardiac disorder [Unknown]

NARRATIVE: CASE EVENT DATE: 20170402
